FAERS Safety Report 17869780 (Version 6)
Quarter: 2020Q3

REPORT INFORMATION
  Report Type: Report from Study
  Country: FR (occurrence: FR)
  Receive Date: 20200608
  Receipt Date: 20200806
  Transmission Date: 20201103
  Serious: Yes (Other)
  Sender: FDA-Public Use
  Company Number: FR-SA-2020SA141238

PATIENT

DRUGS (6)
  1. AUGMENTIN [Concomitant]
     Active Substance: AMOXICILLIN\CLAVULANATE POTASSIUM
     Indication: PRE-EXISTING DISEASE
     Dosage: 1 G, TID
     Route: 048
     Dates: start: 20200524, end: 20200527
  2. PARACETAMOL [Concomitant]
     Active Substance: ACETAMINOPHEN
     Indication: PRE-EXISTING DISEASE
     Dosage: 1000 MG, PRN
     Route: 048
     Dates: start: 20200525, end: 20200530
  3. ENOXAPARIN [Concomitant]
     Active Substance: ENOXAPARIN
     Indication: PROPHYLAXIS
     Dosage: 6000 IU, QD
     Route: 058
     Dates: start: 20200525, end: 20200530
  4. SARILUMAB [Suspect]
     Active Substance: SARILUMAB
     Indication: COVID-19
     Dosage: INTENDED DOSE: 1 BAG; 100 ML/H, 1X
     Route: 041
     Dates: start: 20200527, end: 20200527
  5. GAVISCON [ALGINIC ACID;ALUMINIUM HYDROXIDE;SODIUM BICARBONATE] [Concomitant]
     Indication: ABDOMINAL PAIN UPPER
     Dosage: 1 SACHET, PRN
     Route: 048
     Dates: start: 20200524
  6. AZITHROMYCINE [Concomitant]
     Active Substance: AZITHROMYCIN
     Indication: PRE-EXISTING DISEASE
     Dosage: 250 MG, QD
     Route: 048
     Dates: start: 20200524, end: 20200526

REACTIONS (1)
  - Neutropenia [Recovered/Resolved]

NARRATIVE: CASE EVENT DATE: 20200529
